FAERS Safety Report 4615149-8 (Version None)
Quarter: 2005Q1

REPORT INFORMATION
  Report Type: 
  Country: None (occurrence: None)
  Receive Date: 20050315
  Receipt Date: 20050308
  Transmission Date: 20050727
  Serious: Yes (Life-Threatening, Hospitalization, Disabling)
  Sender: FDA-Public Use
  Company Number: US_0404102096

PATIENT
  Sex: Male
  Weight: 120 kg

DRUGS (31)
  1. ZYPREXA [Suspect]
     Indication: OBSESSIVE-COMPULSIVE DISORDER
     Dosage: 20 MG/ 1 AT BEDTIME
     Dates: start: 19990617, end: 20010419
  2. PROZAC [Suspect]
     Indication: MAJOR DEPRESSION
     Dates: start: 19940101, end: 19950101
  3. LUVOX [Concomitant]
  4. ZOLOFT [Concomitant]
  5. PAXIL [Concomitant]
  6. XANAX (ALPRAZOLAM DUM) [Concomitant]
  7. BUSPAR [Concomitant]
  8. SEROQUEL [Concomitant]
  9. CELEXA [Concomitant]
  10. ATIVAN [Concomitant]
  11. ZANTAC [Concomitant]
  12. REGLAN [Concomitant]
  13. PRILOSEC [Concomitant]
  14. ACETAMINOPHEN [Concomitant]
  15. DARVOCET-N 100 [Concomitant]
  16. PHENERGAN [Concomitant]
  17. ANCEF [Concomitant]
  18. MORPHINE [Concomitant]
  19. CODEINE [Concomitant]
  20. LEXAPRO [Concomitant]
  21. TEGRETOL [Concomitant]
  22. KLONOPIN [Concomitant]
  23. VITAMIN E [Concomitant]
  24. PROTONIX [Concomitant]
  25. WELLBUTRIN [Concomitant]
  26. HYOSCYAMINE [Concomitant]
  27. ROBINUL (GLYCOPYRRONIUM BROMIDE) [Concomitant]
  28. AMBIEN [Concomitant]
  29. BACLOFEN [Concomitant]
  30. LITHIUM [Concomitant]
  31. TRIHEXYPHENIDYL HCL [Concomitant]

REACTIONS (27)
  - AFFECT LABILITY [None]
  - ANXIETY [None]
  - BLOOD ALKALINE PHOSPHATASE INCREASED [None]
  - BLOOD CHOLESTEROL INCREASED [None]
  - BLOOD GLUCOSE INCREASED [None]
  - BLOOD TRIGLYCERIDES INCREASED [None]
  - BRAIN DAMAGE [None]
  - COGNITIVE DISORDER [None]
  - DEPENDENT PERSONALITY DISORDER [None]
  - DEPRESSED MOOD [None]
  - DISTURBANCE IN SOCIAL BEHAVIOUR [None]
  - DRUG DEPENDENCE [None]
  - DRUG HYPERSENSITIVITY [None]
  - EMOTIONAL DISORDER [None]
  - EXTRAPYRAMIDAL DISORDER [None]
  - FEAR [None]
  - GLUCOSE TOLERANCE TEST ABNORMAL [None]
  - HYPERPHAGIA [None]
  - MEMORY IMPAIRMENT [None]
  - MORBID THOUGHTS [None]
  - NERVOUSNESS [None]
  - NEUROLEPTIC MALIGNANT SYNDROME [None]
  - SEDATION [None]
  - SKIN LACERATION [None]
  - TARDIVE DYSKINESIA [None]
  - THINKING ABNORMAL [None]
  - VOMITING [None]
